FAERS Safety Report 7767518-5 (Version None)
Quarter: 2011Q3

REPORT INFORMATION
  Report Type: 
  Country: None (occurrence: None)
  Receive Date: 20110922
  Receipt Date: 20110915
  Transmission Date: 20111222
  Serious: Yes (Death, Hospitalization, Other)
  Sender: FDA-Public Use
  Company Number: JP-JNJFOC-20110802946

PATIENT
  Sex: Female
  Weight: 65 kg

DRUGS (21)
  1. LOXONIN [Concomitant]
     Indication: ABDOMINAL PAIN
     Route: 048
     Dates: start: 20091009
  2. OXYCONTIN [Concomitant]
     Route: 048
     Dates: start: 20091010, end: 20091011
  3. OXYCONTIN [Concomitant]
     Route: 048
     Dates: start: 20091007, end: 20091009
  4. RINDERON-VG [Concomitant]
     Indication: PALMAR ERYTHEMA
     Route: 061
     Dates: start: 20090821
  5. JUVELA [Concomitant]
     Indication: PALMAR ERYTHEMA
     Route: 061
     Dates: start: 20090821
  6. DOXORUBICIN HCL [Suspect]
     Route: 042
     Dates: start: 20090819, end: 20090819
  7. LAXOBERON [Concomitant]
     Indication: CONSTIPATION
     Dosage: AS REQUIRED
     Route: 048
     Dates: start: 20090627, end: 20091113
  8. OXYCONTIN [Concomitant]
     Route: 048
     Dates: start: 20091014
  9. DOXORUBICIN HCL [Suspect]
     Indication: OVARIAN CANCER RECURRENT
     Route: 042
     Dates: start: 20090624, end: 20090624
  10. OXYCONTIN [Concomitant]
     Indication: ABDOMINAL PAIN
     Route: 048
     Dates: start: 20090912, end: 20091013
  11. DOXORUBICIN HCL [Suspect]
     Route: 042
     Dates: start: 20090722, end: 20090722
  12. DOXORUBICIN HCL [Suspect]
     Route: 042
     Dates: start: 20090925, end: 20090925
  13. RESTAMIN [Concomitant]
     Indication: PALMAR ERYTHEMA
     Route: 061
     Dates: start: 20090731, end: 20091113
  14. OXINORM [Concomitant]
     Indication: ABDOMINAL PAIN
     Dosage: AS REQUIRED
     Route: 048
     Dates: start: 20091007
  15. FAMOTIDINE [Concomitant]
     Indication: PROPHYLAXIS
     Route: 048
     Dates: start: 20091012
  16. AZUNOL [Concomitant]
     Indication: PROPHYLAXIS
     Route: 049
     Dates: start: 20090624
  17. BIOFERMIN [Concomitant]
     Indication: PROPHYLAXIS
     Route: 048
  18. AMOBAN [Concomitant]
     Indication: PROPHYLAXIS
     Dosage: AS REQUIRED
     Route: 048
     Dates: start: 20090626, end: 20091113
  19. SHAKUYAKU-K ANZO-TO [Concomitant]
     Indication: NEUROPATHY PERIPHERAL
     Route: 048
     Dates: start: 20090630
  20. ALLEGRA [Concomitant]
     Indication: PALMAR ERYTHEMA
     Route: 048
     Dates: start: 20090731, end: 20091113
  21. DEXALTIN [Concomitant]
     Indication: STOMATITIS
     Route: 049
     Dates: start: 20090706

REACTIONS (3)
  - NEUROPATHY PERIPHERAL [None]
  - OVARIAN CANCER RECURRENT [None]
  - ABDOMINAL PAIN [None]
